FAERS Safety Report 11273639 (Version 1)
Quarter: 2015Q3

REPORT INFORMATION
  Report Type: Report from Study
  Country: PL (occurrence: PL)
  Receive Date: 20150715
  Receipt Date: 20150715
  Transmission Date: 20151125
  Serious: Yes (Hospitalization)
  Sender: FDA-Public Use
  Company Number: PL-ASTRAZENECA-2014SE50360

PATIENT
  Age: 68 Year
  Sex: Female

DRUGS (3)
  1. TICAGRELOR [Suspect]
     Active Substance: TICAGRELOR
     Indication: ACUTE CORONARY SYNDROME
     Route: 048
     Dates: start: 20140503
  2. STUDY PROCEDURE [Suspect]
     Active Substance: INVESTIGATIONAL PRODUCT
     Indication: ACUTE CORONARY SYNDROME
  3. ASPIRIN. [Suspect]
     Active Substance: ASPIRIN
     Indication: ACUTE CORONARY SYNDROME
     Dosage: (NON AZ PRODUCT)
     Route: 048

REACTIONS (3)
  - Vessel puncture site thrombosis [Recovered/Resolved with Sequelae]
  - Vascular pseudoaneurysm [Recovered/Resolved with Sequelae]
  - Catheter site haematoma [Recovered/Resolved with Sequelae]

NARRATIVE: CASE EVENT DATE: 20140504
